FAERS Safety Report 4954778-9 (Version None)
Quarter: 2006Q1

REPORT INFORMATION
  Report Type: 
  Country: None (occurrence: None)
  Receive Date: 20060322
  Receipt Date: 20060306
  Transmission Date: 20060701
  Serious: Yes (Hospitalization)
  Sender: FDA-Public Use
  Company Number: BR200603001410

PATIENT
  Age: 74 Year
  Sex: Female
  Weight: 57 kg

DRUGS (4)
  1. FORTEO [Suspect]
     Indication: OSTEOPOROSIS
     Dosage: 20 UG, DAILY (1/D), SUBCUTANEOUS
     Route: 058
     Dates: start: 20050601, end: 20050901
  2. FORTEO [Concomitant]
  3. PROPYLTHIOURACIL [Concomitant]
  4. SYNTHROID [Concomitant]

REACTIONS (2)
  - LEUKOPENIA [None]
  - PYREXIA [None]
